FAERS Safety Report 9681662 (Version 2)
Quarter: 2013Q4

REPORT INFORMATION
  Report Type: Spontaneous
  Country: VE (occurrence: VE)
  Receive Date: 20131111
  Receipt Date: 20131111
  Transmission Date: 20140711
  Serious: Yes (Hospitalization, Other)
  Sender: FDA-Public Use
  Company Number: PHHY2013VE120994

PATIENT
  Age: 69 Year
  Sex: Female

DRUGS (4)
  1. FORADIL [Suspect]
     Indication: CHRONIC OBSTRUCTIVE PULMONARY DISEASE
     Dosage: 2 DOSE DAILY
  2. FORADIL [Suspect]
     Indication: EMPHYSEMA
     Dosage: 12 UG, EVERY 12 HOURS
     Dates: start: 2001, end: 201310
  3. MIFLONIDE [Suspect]
     Indication: CHRONIC OBSTRUCTIVE PULMONARY DISEASE
     Dosage: 400 MG, EVERY 12 HOURS
     Dates: start: 2001, end: 201310
  4. MIFLONIDE [Suspect]
     Indication: EMPHYSEMA

REACTIONS (8)
  - Myocardial infarction [Recovered/Resolved]
  - Cerebrovascular accident [Recovered/Resolved]
  - Type 2 diabetes mellitus [Recovered/Resolved]
  - Chronic obstructive pulmonary disease [Not Recovered/Not Resolved]
  - Dyspnoea [Not Recovered/Not Resolved]
  - Respiratory distress [Not Recovered/Not Resolved]
  - Blood cholesterol increased [Unknown]
  - Hypertension [Not Recovered/Not Resolved]
